FAERS Safety Report 9093556 (Version 1)
Quarter: 2013Q1

REPORT INFORMATION
  Report Type: Spontaneous
  Country: US (occurrence: US)
  Receive Date: 20130201
  Receipt Date: 20130201
  Transmission Date: 20140127
  Serious: No
  Sender: FDA-Public Use
  Company Number: US-B.I. PHARMACEUTICALS,INC./RIDGEFIELD-2013-BI-02915BP

PATIENT
  Age: 17 Year
  Sex: Female

DRUGS (1)
  1. COMBIVENT [Suspect]
     Dates: start: 201204

REACTIONS (1)
  - Off label use [Unknown]
